FAERS Safety Report 9717517 (Version 1)
Quarter: 2013Q4

REPORT INFORMATION
  Report Type: Spontaneous
  Country: US (occurrence: US)
  Receive Date: 20131127
  Receipt Date: 20131127
  Transmission Date: 20140711
  Serious: No
  Sender: FDA-Public Use
  Company Number: US-GILEAD-2009-0020506

PATIENT
  Sex: Male
  Weight: 60.33 kg

DRUGS (16)
  1. LETAIRIS [Suspect]
     Indication: PULMONARY ARTERIAL HYPERTENSION
     Route: 048
     Dates: start: 20070913
  2. OXYGEN [Concomitant]
  3. REMODULIN [Concomitant]
  4. REVATIO [Concomitant]
  5. NIFEDICAL XL [Concomitant]
  6. GABAPENTIN [Concomitant]
  7. KETAMINE [Concomitant]
  8. KETOPROFEN [Concomitant]
  9. LECITHIN [Concomitant]
  10. LIDOCAINE [Concomitant]
  11. POLOXAMER [Concomitant]
  12. AZATHIOPRINE [Concomitant]
  13. PROTONIX [Concomitant]
  14. LEVOTHYROXINE [Concomitant]
  15. CALCIUM +D [Concomitant]
  16. SODIUM CHLORIDE [Concomitant]

REACTIONS (1)
  - Haemoglobin decreased [Unknown]
